FAERS Safety Report 21926897 (Version 6)
Quarter: 2023Q4

REPORT INFORMATION
  Report Type: Spontaneous
  Country: US (occurrence: US)
  Receive Date: 20230130
  Receipt Date: 20231106
  Transmission Date: 20240110
  Serious: No
  Sender: FDA-Public Use
  Company Number: US-PFIZER INC-PV202200022432

PATIENT
  Age: 54 Year
  Sex: Female
  Weight: 79.8 kg

DRUGS (2)
  1. IBRANCE [Suspect]
     Active Substance: PALBOCICLIB
     Indication: Breast cancer female
     Dosage: 125 MG
  2. IBRANCE [Suspect]
     Active Substance: PALBOCICLIB
     Dosage: 100 MG

REACTIONS (11)
  - Neoplasm progression [Unknown]
  - Speech disorder [Unknown]
  - Psychiatric symptom [Unknown]
  - Nasopharyngitis [Recovering/Resolving]
  - Fatigue [Unknown]
  - Bone pain [Unknown]
  - Sleep disorder [Unknown]
  - Dyspepsia [Unknown]
  - Nausea [Unknown]
  - Headache [Unknown]
  - Product dispensing error [Unknown]
